FAERS Safety Report 9351756 (Version 1)
Quarter: 2013Q2

REPORT INFORMATION
  Report Type: Spontaneous
  Country: US (occurrence: US)
  Receive Date: 20130617
  Receipt Date: 20130617
  Transmission Date: 20140414
  Serious: No
  Sender: FDA-Public Use
  Company Number: US-UPSHER-SMITH LABORATORIES, INC.-12002456

PATIENT
  Sex: Male

DRUGS (3)
  1. PACERONE (USL) [Suspect]
     Indication: CARDIAC PACEMAKER INSERTION
     Dosage: UNK, UNK
     Route: 048
     Dates: end: 2011
  2. UNSPECIFIED BLOOD PRESSURE MEDICATIONS [Concomitant]
     Dosage: UNK
  3. UNSPECIFIED ^BLOOD THINNER^ [Concomitant]
     Dosage: UNK

REACTIONS (2)
  - Visual field defect [Recovering/Resolving]
  - Alopecia [Not Recovered/Not Resolved]
